FAERS Safety Report 7837998-5 (Version None)
Quarter: 2011Q4

REPORT INFORMATION
  Report Type: 
  Country: None (occurrence: None)
  Receive Date: 20111024
  Receipt Date: 20110831
  Transmission Date: 20120403
  Serious: No
  Sender: FDA-Public Use
  Company Number: US-ABBOTT-11P-163-0850719-00

PATIENT
  Age: 55 Year
  Sex: Female
  Weight: 61.744 kg

DRUGS (2)
  1. LUPRON DEPOT [Suspect]
     Indication: UTERINE LEIOMYOMA
     Dates: start: 20110501
  2. LUPRON DEPOT [Suspect]
     Indication: VAGINAL HAEMORRHAGE

REACTIONS (2)
  - HEADACHE [None]
  - MIGRAINE [None]
